FAERS Safety Report 10053026 (Version 2)
Quarter: 2014Q2

REPORT INFORMATION
  Report Type: Spontaneous
  Country: HU (occurrence: None)
  Receive Date: 20140331
  Receipt Date: 20140414
  Transmission Date: 20141212
  Serious: Yes (Hospitalization)
  Sender: FDA-Public Use
  Company Number: VAL_03050_2014

PATIENT
  Age: 28 Year
  Sex: Female

DRUGS (4)
  1. ROCALTROL [Suspect]
     Indication: HYPERPARATHYROIDISM
     Dosage: DF
  2. ARANESP [Concomitant]
  3. FOLIC ACID [Concomitant]
  4. IRON [Concomitant]

REACTIONS (14)
  - Pyelonephritis [None]
  - Gestational diabetes [None]
  - Amylase increased [None]
  - Lipase increased [None]
  - Anaemia [None]
  - Haemodialysis [None]
  - Leukocytosis [None]
  - Enterococcus test positive [None]
  - Escherichia test positive [None]
  - Caesarean section [None]
  - Renal failure chronic [None]
  - Maternal exposure during pregnancy [None]
  - Pruritus [None]
  - Oropharyngeal pain [None]
